FAERS Safety Report 21145935 (Version 1)
Quarter: 2022Q3

REPORT INFORMATION
  Report Type: Spontaneous
  Country: US (occurrence: None)
  Receive Date: 20220729
  Receipt Date: 20220729
  Transmission Date: 20221026
  Serious: Yes (Hospitalization)
  Sender: FDA-Public Use
  Company Number: US-ROCHE-3145989

PATIENT
  Sex: Female

DRUGS (4)
  1. OCREVUS [Suspect]
     Active Substance: OCRELIZUMAB
     Indication: Multiple sclerosis
     Dosage: 300 MG/10ML
     Route: 041
     Dates: start: 20211217
  2. COVID-19 VACCINE NOS [Suspect]
     Active Substance: COVID-19 VACCINE NOS
     Indication: Product used for unknown indication
     Dosage: FOURTH SHOT (BOOSTER)
     Route: 065
     Dates: start: 202206
  3. BENZONATATE [Concomitant]
     Active Substance: BENZONATATE
  4. LIDOCAINE [Concomitant]
     Active Substance: LIDOCAINE
     Dosage: VISC

REACTIONS (1)
  - Febrile neutropenia [Unknown]
